FAERS Safety Report 11796235 (Version 1)
Quarter: 2015Q4

REPORT INFORMATION
  Report Type: Spontaneous
  Country: IT (occurrence: IT)
  Receive Date: 20151203
  Receipt Date: 20151203
  Transmission Date: 20160305
  Serious: Yes (Hospitalization)
  Sender: FDA-Public Use
  Company Number: IT-WATSON-2015-26174

PATIENT
  Age: 67 Year
  Sex: Female

DRUGS (3)
  1. TAVOR [Suspect]
     Active Substance: LORAZEPAM
     Indication: DRUG ABUSE
     Dosage: 5 DF, TOTAL
     Route: 048
     Dates: start: 20150827, end: 20150827
  2. VALSARTAN. [Suspect]
     Active Substance: VALSARTAN
     Indication: DRUG ABUSE
     Dosage: 5 DF, TOTAL
     Route: 048
     Dates: start: 20150827, end: 20150827
  3. GARDENALE                          /00023201/ [Suspect]
     Active Substance: PHENOBARBITAL
     Indication: DRUG ABUSE
     Dosage: 5 DF, TOTAL
     Route: 048
     Dates: start: 20150827, end: 20150827

REACTIONS (2)
  - Drug abuse [Unknown]
  - Sopor [Unknown]

NARRATIVE: CASE EVENT DATE: 20150827
